FAERS Safety Report 4997098-9 (Version None)
Quarter: 2006Q2

REPORT INFORMATION
  Report Type: 
  Country: None (occurrence: None)
  Receive Date: 20060508
  Receipt Date: 20060508
  Transmission Date: 20061013
  Serious: Yes (Death)
  Sender: FDA-Public Use
  Company Number: None

PATIENT
  Age: 78 Year
  Sex: Male
  Weight: 73 kg

DRUGS (1)
  1. APROTININ [Suspect]
     Indication: HAEMORRHAGIC DISORDER
     Dosage: 200CC  ONCE IV BOLUS   DURATION OF SURGERY
     Route: 040
     Dates: start: 20051222, end: 20051222

REACTIONS (11)
  - ATRIAL FIBRILLATION [None]
  - CANDIDA SEPSIS [None]
  - DIABETES MELLITUS INADEQUATE CONTROL [None]
  - HAEMODIALYSIS [None]
  - LOWER GASTROINTESTINAL HAEMORRHAGE [None]
  - LUNG INFECTION PSEUDOMONAL [None]
  - POST PROCEDURAL COMPLICATION [None]
  - RENAL FAILURE ACUTE [None]
  - RENAL FAILURE CHRONIC [None]
  - RESPIRATORY FAILURE [None]
  - SEPTIC SHOCK [None]
